FAERS Safety Report 10559461 (Version 1)
Quarter: 2014Q4

REPORT INFORMATION
  Report Type: Spontaneous
  Country: US (occurrence: None)
  Receive Date: 20141031
  Receipt Date: 20141031
  Transmission Date: 20150529
  Serious: Yes (Death)
  Sender: FDA-Public Use
  Company Number: None

PATIENT
  Age: 78 Year
  Sex: Female

DRUGS (6)
  1. GABAPENTIN. [Concomitant]
     Active Substance: GABAPENTIN
  2. POTASSIUM CHLORIDE. [Concomitant]
     Active Substance: POTASSIUM CHLORIDE
  3. WARFARIN  4 MG [Suspect]
     Active Substance: WARFARIN
     Indication: DEEP VEIN THROMBOSIS
     Route: 048
  4. TRAMADOL [Concomitant]
     Active Substance: TRAMADOL
  5. DOCUSATE [Concomitant]
     Active Substance: DOCUSATE
  6. FUROSEMIDE. [Concomitant]
     Active Substance: FUROSEMIDE

REACTIONS (4)
  - Confusional state [None]
  - Pneumonia [None]
  - Haemorrhagic stroke [None]
  - International normalised ratio increased [None]

NARRATIVE: CASE EVENT DATE: 20140814
